FAERS Safety Report 5825906-8 (Version None)
Quarter: 2008Q3

REPORT INFORMATION
  Report Type: 
  Country: None (occurrence: None)
  Receive Date: 20080729
  Receipt Date: 20080722
  Transmission Date: 20090109
  Serious: Yes (Other)
  Sender: FDA-Public Use
  Company Number: US-AVENTIS-200814157US

PATIENT
  Sex: Female

DRUGS (2)
  1. AMARYL [Suspect]
     Dosage: DOSE: UNK
  2. AMARYL [Suspect]
     Dosage: DOSE: UNK

REACTIONS (6)
  - BLOOD GLUCOSE DECREASED [None]
  - BLOOD GLUCOSE INCREASED [None]
  - LOSS OF CONSCIOUSNESS [None]
  - MALAISE [None]
  - ROAD TRAFFIC ACCIDENT [None]
  - SOMNOLENCE [None]
